FAERS Safety Report 4285716-2 (Version None)
Quarter: 2004Q1

REPORT INFORMATION
  Report Type: 
  Country: None (occurrence: None)
  Receive Date: 20040203
  Receipt Date: 20040127
  Transmission Date: 20041129
  Serious: Yes (Hospitalization)
  Sender: FDA-Public Use
  Company Number: 200410312FR

PATIENT
  Age: 81 Year
  Sex: Male

DRUGS (5)
  1. FUROSEMIDE [Suspect]
     Dosage: 1 U PO
     Route: 048
  2. DIGOXIN [Suspect]
     Dosage: 0.5 U PO
     Route: 048
  3. RILMENDINE (HYPERIUM 1 MG) TABLETS [Suspect]
     Dosage: 2 MG PO
     Route: 048
  4. SINTROM [Suspect]
     Dosage: 2 MG PO
     Route: 048
     Dates: end: 20000510
  5. NICARDIPINE HCL [Suspect]
     Dosage: PO
     Route: 048

REACTIONS (1)
  - HAEMATURIA [None]
